FAERS Safety Report 7535746-X (Version None)
Quarter: 2011Q2

REPORT INFORMATION
  Report Type: 
  Country: None (occurrence: None)
  Receive Date: 20110609
  Receipt Date: 20110307
  Transmission Date: 20111010
  Serious: No
  Sender: FDA-Public Use
  Company Number: US-KINGPHARMUSA00001-K201100246

PATIENT
  Sex: Male

DRUGS (2)
  1. EMBEDA [Suspect]
     Dosage: UNK, UNK, UNK
  2. EMBEDA [Suspect]
     Indication: BACK PAIN
     Dosage: 50 MG, UNK

REACTIONS (3)
  - PALPITATIONS [None]
  - DRUG INEFFECTIVE [None]
  - BLOOD PRESSURE INCREASED [None]
